FAERS Safety Report 5239374-0 (Version None)
Quarter: 2007Q1

REPORT INFORMATION
  Report Type: 
  Country: None (occurrence: None)
  Receive Date: 20070214
  Receipt Date: 20070214
  Transmission Date: 20070707
  Serious: Yes (Hospitalization)
  Sender: FDA-Public Use
  Company Number: None

PATIENT
  Age: 81 Year
  Sex: Male
  Weight: 75.5693 kg

DRUGS (1)
  1. ACETAMINOPHEN W/ CODEINE TAB [Suspect]
     Indication: BACK PAIN
     Dosage: 300/30 Q6H PRN PO
     Route: 048
     Dates: start: 20061219, end: 20061220

REACTIONS (3)
  - DEPRESSED LEVEL OF CONSCIOUSNESS [None]
  - FALL [None]
  - SYNCOPE [None]
